FAERS Safety Report 5073849-2 (Version None)
Quarter: 2006Q3

REPORT INFORMATION
  Report Type: 
  Country: None (occurrence: None)
  Receive Date: 20060803
  Receipt Date: 20060713
  Transmission Date: 20061208
  Serious: Yes (Hospitalization)
  Sender: FDA-Public Use
  Company Number: 0610012

PATIENT
  Age: 4 Year
  Sex: Male
  Weight: 15 kg

DRUGS (6)
  1. ORFADIN [Suspect]
     Indication: TYROSINAEMIA
     Dosage: 5 MILLIGRAM THREE TIMES DAILY, ORAL
     Route: 048
     Dates: start: 20021201
  2. VITAMINE C [Concomitant]
  3. VITAMINE E [Concomitant]
  4. L-CARNITENE [Concomitant]
  5. MILUPA TYR2 [Concomitant]
  6. CALCIUM SUPP [Concomitant]

REACTIONS (8)
  - ABASIA [None]
  - ELECTROMYOGRAM ABNORMAL [None]
  - GASTROENTERITIS [None]
  - HYPOREFLEXIA [None]
  - HYPOTONIA [None]
  - MYALGIA [None]
  - PARAESTHESIA [None]
  - POLYNEUROPATHY [None]
